FAERS Safety Report 8363964-X (Version None)
Quarter: 2012Q2

REPORT INFORMATION
  Report Type: 
  Country: None (occurrence: None)
  Receive Date: 20120516
  Receipt Date: 20120510
  Transmission Date: 20120825
  Serious: Yes (Death, Other)
  Sender: FDA-Public Use
  Company Number: US-PFIZER INC-2012064997

PATIENT
  Sex: Male

DRUGS (2)
  1. VFEND [Suspect]
     Dosage: 200 MG, 2X/DAY
     Route: 048
     Dates: start: 20110622
  2. VFEND [Suspect]
     Indication: INFECTION
     Dosage: 200 MG, 2X/DAY
     Dates: start: 20110513

REACTIONS (2)
  - IMMUNE SYSTEM DISORDER [None]
  - DEATH [None]
